FAERS Safety Report 8525884-7 (Version None)
Quarter: 2012Q3

REPORT INFORMATION
  Report Type: 
  Country: None (occurrence: None)
  Receive Date: 20120720
  Receipt Date: 20120718
  Transmission Date: 20120928
  Serious: Yes (Hospitalization)
  Sender: FDA-Public Use
  Company Number: AU-B.I. PHARMACEUTICALS,INC./RIDGEFIELD-2012-AU-00437AU

PATIENT
  Sex: Female

DRUGS (6)
  1. ACETAMINOPHEN [Concomitant]
  2. PERINDOPRIL ERBUMINE [Concomitant]
  3. MOBIC [Suspect]
     Indication: NECK PAIN
     Dosage: 15 MG
  4. RABEPRAZOLE SODIUM [Concomitant]
  5. LYRICA [Concomitant]
  6. ZOCOR [Concomitant]

REACTIONS (1)
  - BRAIN STEM STROKE [None]
